FAERS Safety Report 7607758-9 (Version None)
Quarter: 2011Q3

REPORT INFORMATION
  Report Type: 
  Country: None (occurrence: None)
  Receive Date: 20110713
  Receipt Date: 20110603
  Transmission Date: 20111222
  Serious: Yes (Other)
  Sender: FDA-Public Use
  Company Number: PHHY2011BR49529

PATIENT
  Sex: Female

DRUGS (5)
  1. EXFORGE [Suspect]
     Indication: HYPERTENSION
     Dosage: 1 DF, DAILY
     Dates: start: 20080901
  2. EXFORGE [Suspect]
     Dosage: 1 DF, DAILY
     Dates: start: 20110502
  3. ANASTROZOLE [Concomitant]
     Indication: HORMONE LEVEL ABNORMAL
     Dosage: 1 DF, DAILY
     Route: 048
     Dates: start: 20101001
  4. CLONIDINE HYDROCHLORIDE [Concomitant]
     Indication: HYPERTENSION
     Dosage: 6 DF, DAILY
     Route: 048
  5. HYDROCHLOROTHIAZIDE [Concomitant]
     Dosage: 1 DF, DAILY
     Route: 048

REACTIONS (3)
  - BREAST CANCER [None]
  - BREAST MASS [None]
  - OEDEMA PERIPHERAL [None]
